FAERS Safety Report 7111641-5 (Version None)
Quarter: 2010Q4

REPORT INFORMATION
  Report Type: 
  Country: None (occurrence: None)
  Receive Date: 20101118
  Receipt Date: 20101108
  Transmission Date: 20110411
  Serious: Yes (Other)
  Sender: FDA-Public Use
  Company Number: FR-B.I. PHARMACEUTICALS,INC./RIDGEFIELD-2010-FF-00907FF

PATIENT
  Age: 38 Year
  Sex: Female

DRUGS (10)
  1. VIRAMUNE [Suspect]
     Indication: HIV INFECTION
     Dosage: 2 DOSAGE FORM DAILY
     Route: 048
     Dates: start: 20061212, end: 20070604
  2. TRUVADA [Suspect]
     Indication: HIV INFECTION
     Dosage: 1 ANZ
     Route: 048
     Dates: start: 20061212, end: 20070604
  3. VIREAD [Suspect]
     Indication: HIV INFECTION
     Route: 048
     Dates: end: 20061212
  4. VIREAD [Suspect]
     Dosage: 1 DOSAGE FORM DAILY
     Route: 048
     Dates: start: 20070604
  5. KALETRA [Concomitant]
     Indication: HIV INFECTION
     Dates: start: 20070604
  6. RETROVIR [Concomitant]
     Indication: HIV INFECTION
     Dates: start: 20070604
  7. TARDYFERON B9 [Concomitant]
     Dosage: 2 ANZ
  8. LAMIVUDINE (EPIVIR HBV) [Concomitant]
  9. EFAVIRENZ [Concomitant]
  10. ETRAVIRINE [Concomitant]

REACTIONS (3)
  - DRUG INEFFECTIVE [None]
  - GENOTYPE DRUG RESISTANCE TEST POSITIVE [None]
  - VIRAL LOAD INCREASED [None]
